FAERS Safety Report 22148241 (Version 1)
Quarter: 2023Q1

REPORT INFORMATION
  Report Type: Spontaneous
  Country: US (occurrence: US)
  Receive Date: 20230328
  Receipt Date: 20230328
  Transmission Date: 20230417
  Serious: Yes (Hospitalization)
  Sender: FDA-Public Use
  Company Number: US-PFIZER INC-PV202300055724

PATIENT
  Age: 48 Year
  Sex: Male

DRUGS (1)
  1. INLYTA [Suspect]
     Active Substance: AXITINIB
     Dosage: UNK

REACTIONS (6)
  - Oxygen saturation decreased [Recovering/Resolving]
  - Pleural effusion [Unknown]
  - Chest pain [Unknown]
  - Dyspnoea [Unknown]
  - Speech disorder [Unknown]
  - Vision blurred [Unknown]
